FAERS Safety Report 7961432-8 (Version None)
Quarter: 2011Q4

REPORT INFORMATION
  Report Type: 
  Country: None (occurrence: None)
  Receive Date: 20111121
  Receipt Date: 20110926
  Transmission Date: 20120403
  Serious: No
  Sender: FDA-Public Use
  Company Number: 1000024239

PATIENT
  Sex: Female

DRUGS (1)
  1. VIIBRYD [Suspect]

REACTIONS (4)
  - WEIGHT INCREASED [None]
  - DIARRHOEA [None]
  - NAUSEA [None]
  - HYPERHIDROSIS [None]
